FAERS Safety Report 7043855-7 (Version None)
Quarter: 2010Q4

REPORT INFORMATION
  Report Type: 
  Country: None (occurrence: None)
  Receive Date: 20101012
  Receipt Date: 20101012
  Transmission Date: 20110411
  Serious: No
  Sender: FDA-Public Use
  Company Number: None

PATIENT
  Age: 64 Year
  Sex: Male
  Weight: 72.5755 kg

DRUGS (1)
  1. REVATIO [Suspect]
     Indication: PULMONARY ARTERIAL HYPERTENSION
     Dosage: ONE TAB BY MOUTH 3 TIMES A DAY 3 TIMES A DAY PO
     Route: 048
     Dates: start: 20060101, end: 20090301

REACTIONS (3)
  - DEAFNESS [None]
  - HEARING IMPAIRED [None]
  - TINNITUS [None]
